FAERS Safety Report 22319212 (Version 1)
Quarter: 2023Q2

REPORT INFORMATION
  Report Type: Spontaneous
  Country: US (occurrence: None)
  Receive Date: 20230515
  Receipt Date: 20230515
  Transmission Date: 20230721
  Serious: Yes (Other)
  Sender: FDA-Public Use
  Company Number: US-FARMAPROD-202303-0862

PATIENT
  Age: 94 Year
  Sex: Female

DRUGS (9)
  1. OXERVATE [Suspect]
     Active Substance: CENEGERMIN-BKBJ
     Indication: Herpes ophthalmic
     Route: 047
     Dates: start: 20230306
  2. ERYTHROMYCIN [Concomitant]
     Active Substance: ERYTHROMYCIN
  3. MOXIFLOXACIN [Concomitant]
     Active Substance: MOXIFLOXACIN
  4. REFRESH OPTIVE MEGA-3 [Concomitant]
     Active Substance: CARBOXYMETHYLCELLULOSE SODIUM\GLYCERIN\POLYSORBATE 80
  5. IRON\VITAMINS [Concomitant]
     Active Substance: IRON\VITAMINS
  6. VISION FORMULA [Concomitant]
     Dosage: 300 MCG-200
  7. CALCIUM / VITAMIN D [Concomitant]
  8. PROPRANOLOL HYDROCHLORIDE [Concomitant]
     Active Substance: PROPRANOLOL HYDROCHLORIDE
  9. VALACYCLOVIR [Concomitant]
     Active Substance: VALACYCLOVIR HYDROCHLORIDE

REACTIONS (3)
  - Eye operation [Unknown]
  - Off label use [Unknown]
  - Eye swelling [Unknown]

NARRATIVE: CASE EVENT DATE: 20230328
